FAERS Safety Report 15472486 (Version 2)
Quarter: 2019Q2

REPORT INFORMATION
  Report Type: Report from Study
  Country: US (occurrence: US)
  Receive Date: 20181008
  Receipt Date: 20190508
  Transmission Date: 20190711
  Serious: Yes (Other)
  Sender: FDA-Public Use
  Company Number: PHEH2018US041418

PATIENT
  Sex: Male

DRUGS (1)
  1. GILENYA [Suspect]
     Active Substance: FINGOLIMOD HYDROCHLORIDE
     Indication: MULTIPLE SCLEROSIS
     Dosage: 0.5 MG, QD
     Route: 048
     Dates: start: 20180218

REACTIONS (8)
  - Vitreous floaters [Unknown]
  - Intervertebral disc protrusion [Unknown]
  - Rhinorrhoea [Unknown]
  - Post-traumatic neck syndrome [Unknown]
  - Tremor [Unknown]
  - Road traffic accident [Unknown]
  - Neuropathy peripheral [Unknown]
  - Diarrhoea [Unknown]
